FAERS Safety Report 12226594 (Version 2)
Quarter: 2016Q2

REPORT INFORMATION
  Report Type: Report from Study
  Country: US (occurrence: US)
  Receive Date: 20160331
  Receipt Date: 20160413
  Transmission Date: 20160815
  Serious: Yes (Other)
  Sender: FDA-Public Use
  Company Number: US-GILEAD-2016-0206007

PATIENT
  Age: 72 Year
  Sex: Female

DRUGS (1)
  1. AMBRISENTAN [Suspect]
     Active Substance: AMBRISENTAN
     Indication: PRODUCT USED FOR UNKNOWN INDICATION
     Dosage: 5 MG, UNK
     Route: 065

REACTIONS (9)
  - Renal failure [Unknown]
  - Back pain [Unknown]
  - Joint contracture [Unknown]
  - White blood cell disorder [Unknown]
  - Functional gastrointestinal disorder [Unknown]
  - Spinal deformity [Unknown]
  - Hand deformity [Unknown]
  - Hypertension [Unknown]
  - Dysphagia [Unknown]
